FAERS Safety Report 5306816-1 (Version None)
Quarter: 2007Q2

REPORT INFORMATION
  Report Type: 
  Country: None (occurrence: None)
  Receive Date: 20070420
  Receipt Date: 20070420
  Transmission Date: 20071010
  Serious: Yes (Hospitalization)
  Sender: FDA-Public Use
  Company Number: None

PATIENT
  Age: 62 Year
  Sex: Female

DRUGS (2)
  1. AVINZA [Suspect]
  2. NARCAN [Suspect]
     Dosage: 1 DOSE OF NARCAN GIVEN

REACTIONS (3)
  - BLOOD PRESSURE DIASTOLIC [None]
  - GRAND MAL CONVULSION [None]
  - RENAL INJURY [None]
